FAERS Safety Report 9368773 (Version 1)
Quarter: 2013Q2

REPORT INFORMATION
  Report Type: Spontaneous
  Country: GR (occurrence: GR)
  Receive Date: 20130626
  Receipt Date: 20130626
  Transmission Date: 20140414
  Serious: Yes (Other)
  Sender: FDA-Public Use
  Company Number: PHHY2013GR062732

PATIENT
  Age: 33 Year
  Sex: Female

DRUGS (1)
  1. LAMOTRIGINE [Suspect]
     Indication: JUVENILE MYOCLONIC EPILEPSY

REACTIONS (6)
  - Pityriasis rosea [Recovered/Resolved]
  - Rash erythematous [Recovered/Resolved]
  - Pruritus [Recovered/Resolved]
  - Rash papulosquamous [Recovered/Resolved]
  - Lymphadenopathy [Recovered/Resolved]
  - Lymphocytic infiltration [Recovered/Resolved]
